FAERS Safety Report 18907807 (Version 1)
Quarter: 2021Q1

REPORT INFORMATION
  Report Type: Spontaneous
  Country: JP (occurrence: JP)
  Receive Date: 20210217
  Receipt Date: 20210217
  Transmission Date: 20210420
  Serious: Yes (Death, Other)
  Sender: FDA-Public Use
  Company Number: JP-AMGEN-JPNSP2021024994

PATIENT
  Age: 60 Year
  Sex: Female

DRUGS (2)
  1. RANMARK [Suspect]
     Active Substance: DENOSUMAB
     Indication: METASTASES TO BONE
     Dosage: UNK
     Route: 065
  2. ZOLEDRONIC ACID [Suspect]
     Active Substance: ZOLEDRONIC ACID
     Indication: METASTASES TO BONE
     Dosage: UNK
     Route: 065

REACTIONS (8)
  - Coordination abnormal [Unknown]
  - Osteomyelitis [Unknown]
  - Anaemia [Unknown]
  - Myelosuppression [Unknown]
  - Death [Fatal]
  - Necrotising fasciitis [Unknown]
  - Decreased appetite [Unknown]
  - Malaise [Unknown]
